FAERS Safety Report 21957020 (Version 5)
Quarter: 2025Q4

REPORT INFORMATION
  Report Type: Spontaneous
  Country: EU (occurrence: EU)
  Receive Date: 20230206
  Receipt Date: 20251107
  Transmission Date: 20260117
  Serious: Yes (Hospitalization, Congenital Anomaly, Other)
  Sender: COSETTE PHARMACEUTICALS INC
  Company Number: EU-COSETTE-CP2023IT000018

PATIENT
  Sex: Female
  Weight: 2.2 kg

DRUGS (6)
  1. BENICAR [Suspect]
     Active Substance: OLMESARTAN MEDOXOMIL
     Indication: Foetal exposure during pregnancy
     Route: 064
  2. BENICAR [Suspect]
     Active Substance: OLMESARTAN MEDOXOMIL
     Indication: Essential hypertension
  3. ASPIRIN [Suspect]
     Active Substance: ASPIRIN
     Indication: Foetal exposure during pregnancy
     Route: 064
  4. ASPIRIN [Suspect]
     Active Substance: ASPIRIN
     Indication: Product used for unknown indication
  5. NIFEDIPINE [Suspect]
     Active Substance: NIFEDIPINE
     Indication: Essential hypertension
     Route: 064
  6. NIFEDIPINE [Suspect]
     Active Substance: NIFEDIPINE
     Indication: Foetal exposure during pregnancy

REACTIONS (11)
  - Hypertension neonatal [Not Recovered/Not Resolved]
  - Bone density decreased [Not Recovered/Not Resolved]
  - Bone disorder [Unknown]
  - Renal tubular dysfunction [Unknown]
  - Renal impairment neonatal [Unknown]
  - Hypocalvaria [Not Recovered/Not Resolved]
  - Hypertension [Not Recovered/Not Resolved]
  - Renin increased [Not Recovered/Not Resolved]
  - Blood aldosterone increased [Not Recovered/Not Resolved]
  - Foetal exposure during pregnancy [Unknown]
  - Muscle contracture [Unknown]
